FAERS Safety Report 9665572 (Version 2)
Quarter: 2013Q4

REPORT INFORMATION
  Report Type: Spontaneous
  Country: US (occurrence: US)
  Receive Date: 20131104
  Receipt Date: 20131113
  Transmission Date: 20140711
  Serious: No
  Sender: FDA-Public Use
  Company Number: US-PFIZER INC-2013311607

PATIENT
  Age: 63 Year
  Sex: Female
  Weight: 74.83 kg

DRUGS (2)
  1. LYRICA [Suspect]
     Indication: FIBROMYALGIA
     Dosage: 200 MG, 3X/DAY
     Dates: end: 201310
  2. PREDNISONE [Concomitant]
     Indication: ARTHRITIS
     Dosage: 2 MG, 1X/DAY

REACTIONS (3)
  - Neck pain [Unknown]
  - Pain in extremity [Unknown]
  - Abdominal pain upper [Unknown]
